FAERS Safety Report 7530843-7 (Version None)
Quarter: 2011Q2

REPORT INFORMATION
  Report Type: 
  Country: None (occurrence: None)
  Receive Date: 20110607
  Receipt Date: 20110525
  Transmission Date: 20111010
  Serious: Yes (Death, Hospitalization)
  Sender: FDA-Public Use
  Company Number: IE-MYLANLABS-2011S1011191

PATIENT
  Age: 54 Year
  Sex: Male

DRUGS (12)
  1. BUPRENORPHINE [Interacting]
     Indication: PAIN
     Route: 061
  2. DOMPERIDONE [Interacting]
     Route: 065
  3. FLOXACILLIN SODIUM [Concomitant]
     Indication: NEUROPATHIC ULCER
     Route: 042
  4. ATORVASTATIN [Interacting]
  5. CLOPIDOGREL [Interacting]
     Route: 065
  6. FUSIDIC ACID [Interacting]
     Indication: NEUROPATHIC ULCER
     Route: 042
  7. PREGABALIN [Concomitant]
     Indication: PAIN
     Route: 048
  8. RAMIPRIL [Concomitant]
     Route: 065
  9. METRONIDAZOLE [Concomitant]
     Indication: NEUROPATHIC ULCER
     Route: 042
  10. ATORVASTATIN [Interacting]
     Indication: MYOCARDIAL INFARCTION
     Route: 065
  11. ASPIRIN [Interacting]
     Route: 065
  12. LANSOPRAZOLE [Suspect]
     Route: 065

REACTIONS (3)
  - RENAL FAILURE ACUTE [None]
  - RHABDOMYOLYSIS [None]
  - DRUG INTERACTION [None]
